FAERS Safety Report 16777491 (Version 2)
Quarter: 2020Q1

REPORT INFORMATION
  Report Type: Spontaneous
  Country: US (occurrence: US)
  Receive Date: 20190905
  Receipt Date: 20200320
  Transmission Date: 20200409
  Serious: No
  Sender: FDA-Public Use
  Company Number: US-TEVA-2019-US-1102458

PATIENT
  Sex: Female

DRUGS (1)
  1. CLONAZEPAM TABLET ACTAVIS [Suspect]
     Active Substance: CLONAZEPAM
     Indication: ANXIETY
     Route: 065
     Dates: start: 20190827

REACTIONS (4)
  - Product substitution issue [Unknown]
  - Headache [Not Recovered/Not Resolved]
  - Depression [Unknown]
  - Malaise [Unknown]
